FAERS Safety Report 9019723 (Version 1)
Quarter: 2013Q1

REPORT INFORMATION
  Report Type: Spontaneous
  Country: IT (occurrence: IT)
  Receive Date: 20130118
  Receipt Date: 20130118
  Transmission Date: 20140127
  Serious: Yes (Other)
  Sender: FDA-Public Use
  Company Number: IT-PFIZER INC-2013018208

PATIENT
  Age: 14 Year
  Sex: Male

DRUGS (3)
  1. METHOTREXATE [Suspect]
     Indication: OSTEOSARCOMA
     Dosage: 12.0 G/KG, UNK
  2. CISPLATIN [Suspect]
     Indication: OSTEOSARCOMA
     Dosage: UNK
  3. DOXORUBICIN HCL [Suspect]
     Indication: OSTEOSARCOMA
     Dosage: UNK

REACTIONS (1)
  - Cutaneous tuberculosis [Unknown]
